FAERS Safety Report 12566783 (Version 1)
Quarter: 2016Q3

REPORT INFORMATION
  Report Type: Spontaneous
  Country: SE (occurrence: SE)
  Receive Date: 20160718
  Receipt Date: 20160718
  Transmission Date: 20161109
  Serious: Yes (Other)
  Sender: FDA-Public Use
  Company Number: SE-PFIZER INC-2016341488

PATIENT
  Age: 56 Year
  Sex: Female

DRUGS (1)
  1. DEPO-MEDROL [Suspect]
     Active Substance: METHYLPREDNISOLONE ACETATE
     Indication: PLANTAR FASCIITIS
     Dosage: UNK
     Dates: end: 20151120

REACTIONS (3)
  - Pain [Unknown]
  - Gait disturbance [Unknown]
  - Bone marrow oedema [Unknown]

NARRATIVE: CASE EVENT DATE: 20151121
